FAERS Safety Report 21993661 (Version 1)
Quarter: 2023Q1

REPORT INFORMATION
  Report Type: Spontaneous
  Country: US (occurrence: US)
  Receive Date: 20230215
  Receipt Date: 20230215
  Transmission Date: 20230418
  Serious: No
  Sender: FDA-Public Use
  Company Number: US-ABBVIE-4304919

PATIENT
  Sex: Male

DRUGS (6)
  1. RINVOQ [Suspect]
     Active Substance: UPADACITINIB
     Indication: Colitis ulcerative
     Dosage: 30 MILLIGRAM
     Route: 048
     Dates: start: 2022
  2. METOPROLOL [Concomitant]
     Active Substance: METOPROLOL
     Indication: Product used for unknown indication
  3. KETOCONAZOLE [Concomitant]
     Active Substance: KETOCONAZOLE
     Indication: Dry skin
     Route: 061
  4. ELIQUIS [Concomitant]
     Active Substance: APIXABAN
     Indication: Product used for unknown indication
  5. DISOPYRAMIDE [Concomitant]
     Active Substance: DISOPYRAMIDE
     Indication: Product used for unknown indication
  6. LISINOPRIL [Concomitant]
     Active Substance: LISINOPRIL
     Indication: Hypertension

REACTIONS (9)
  - Dry skin [Recovering/Resolving]
  - Colitis ulcerative [Not Recovered/Not Resolved]
  - Rash [Recovering/Resolving]
  - Blood creatinine increased [Unknown]
  - Skin disorder [Recovering/Resolving]
  - Liver function test increased [Unknown]
  - Renal function test abnormal [Unknown]
  - Therapeutic product effect delayed [Not Recovered/Not Resolved]
  - Pruritus [Recovered/Resolved]

NARRATIVE: CASE EVENT DATE: 20220101
